FAERS Safety Report 4691918-3 (Version None)
Quarter: 2005Q2

REPORT INFORMATION
  Report Type: 
  Country: None (occurrence: None)
  Receive Date: 20050614
  Receipt Date: 20050525
  Transmission Date: 20051028
  Serious: No
  Sender: FDA-Public Use
  Company Number: TRP_0138_2005

PATIENT
  Sex: Male

DRUGS (3)
  1. RIBASPHERE [Suspect]
     Dosage: 800 MG PO
     Route: 048
  2. PEGASYS [Suspect]
     Dosage: 180 MCG SC
     Route: 058
  3. PROCRIT [Concomitant]

REACTIONS (2)
  - ABDOMINAL DISTENSION [None]
  - HAEMOGLOBIN DECREASED [None]
